FAERS Safety Report 23517253 (Version 1)
Quarter: 2024Q1

REPORT INFORMATION
  Report Type: Spontaneous
  Country: US (occurrence: None)
  Receive Date: 20240212
  Receipt Date: 20240212
  Transmission Date: 20240410
  Serious: Yes (Life-Threatening, Hospitalization, Disabling, Other)
  Sender: FDA-Public Use
  Company Number: None

PATIENT
  Age: 60 Year
  Sex: Female
  Weight: 64.1 kg

DRUGS (1)
  1. SEMAGLUTIDE [Suspect]
     Active Substance: SEMAGLUTIDE
     Indication: Diabetes mellitus
     Dosage: FREQUENCY : WEEKLY;?
     Route: 058
     Dates: start: 20230601, end: 20240113

REACTIONS (24)
  - Gastric bypass [None]
  - Post procedural complication [None]
  - Small intestinal obstruction [None]
  - Gastrointestinal necrosis [None]
  - Peritonitis [None]
  - Gastrointestinal procedural complication [None]
  - Gastric perforation [None]
  - Anastomotic leak [None]
  - Intra-abdominal haematoma [None]
  - Splenic rupture [None]
  - Splenic haemorrhage [None]
  - Septic shock [None]
  - Bacterial infection [None]
  - Klebsiella infection [None]
  - Thrombocytopenia [None]
  - Drug hypersensitivity [None]
  - Renal tubular necrosis [None]
  - Acute kidney injury [None]
  - Haemofiltration [None]
  - Pneumonia moraxella [None]
  - Gastrointestinal necrosis [None]
  - Secondary thrombocytosis [None]
  - Multiple organ dysfunction syndrome [None]
  - Ischaemic hepatitis [None]

NARRATIVE: CASE EVENT DATE: 20240121
